FAERS Safety Report 5283353-4 (Version None)
Quarter: 2007Q1

REPORT INFORMATION
  Report Type: 
  Country: None (occurrence: None)
  Receive Date: 20070328
  Receipt Date: 20070328
  Transmission Date: 20070707
  Serious: Yes (Hospitalization)
  Sender: FDA-Public Use
  Company Number: None

PATIENT
  Sex: Male
  Weight: 67.1324 kg

DRUGS (2)
  1. CISPLATIN [Suspect]
     Indication: NEOPLASM MALIGNANT
     Dosage: 53 MG IV/WEEKLY
     Route: 042
     Dates: start: 20070213
  2. ERBITUX [Suspect]
     Indication: NEOPLASM MALIGNANT
     Dosage: 443 MG IV/WEEKLY
     Route: 042
     Dates: start: 20070213

REACTIONS (3)
  - CONFUSIONAL STATE [None]
  - DIZZINESS [None]
  - PYREXIA [None]
